FAERS Safety Report 7981626-5 (Version None)
Quarter: 2011Q4

REPORT INFORMATION
  Report Type: 
  Country: None (occurrence: None)
  Receive Date: 20111215
  Receipt Date: 20111208
  Transmission Date: 20120403
  Serious: Yes (Other)
  Sender: FDA-Public Use
  Company Number: US-BRISTOL-MYERS SQUIBB COMPANY-16279408

PATIENT
  Sex: Female

DRUGS (4)
  1. KOMBIGLYZE XR [Suspect]
  2. METFORMIN HCL [Suspect]
  3. ONGLYZA [Suspect]
  4. AMBIEN [Suspect]

REACTIONS (1)
  - BURNING MOUTH SYNDROME [None]
